FAERS Safety Report 13612550 (Version 2)
Quarter: 2017Q2

REPORT INFORMATION
  Report Type: Spontaneous
  Country: US (occurrence: US)
  Receive Date: 20170605
  Receipt Date: 20170609
  Transmission Date: 20170830
  Serious: Yes (Other)
  Sender: FDA-Public Use
  Company Number: US-PFIZER INC-2017241622

PATIENT
  Age: 65 Year
  Sex: Female
  Weight: 143 kg

DRUGS (2)
  1. LEVOTHYROXINE. [Concomitant]
     Active Substance: LEVOTHYROXINE
     Indication: THYROID DISORDER
     Dosage: 1.25 UG, 1X/DAY
     Route: 048
  2. CHANTIX [Suspect]
     Active Substance: VARENICLINE TARTRATE
     Indication: SMOKING CESSATION THERAPY
     Dosage: UNK, 1X/DAY
     Dates: start: 201702, end: 201703

REACTIONS (6)
  - Pneumonia [Recovering/Resolving]
  - Abnormal dreams [Not Recovered/Not Resolved]
  - Viral upper respiratory tract infection [Recovering/Resolving]
  - Respiratory tract congestion [Recovering/Resolving]
  - Hallucination [Not Recovered/Not Resolved]
  - Dizziness [Not Recovered/Not Resolved]

NARRATIVE: CASE EVENT DATE: 2017
